FAERS Safety Report 7051301-2 (Version None)
Quarter: 2010Q4

REPORT INFORMATION
  Report Type: 
  Country: None (occurrence: None)
  Receive Date: 20101019
  Receipt Date: 20101004
  Transmission Date: 20110411
  Serious: Yes (Hospitalization, Other)
  Sender: FDA-Public Use
  Company Number: TR-SANOFI-AVENTIS-2010SA060096

PATIENT
  Age: 7 Month
  Sex: Male

DRUGS (3)
  1. CEFOTAXIME SODIUM [Suspect]
  2. CEFTRIAXONE [Suspect]
     Indication: MENINGITIS
  3. VANCOMYCIN [Suspect]
     Indication: MENINGITIS

REACTIONS (5)
  - ACTIVATED PARTIAL THROMBOPLASTIN TIME PROLONGED [None]
  - HAEMOGLOBIN DECREASED [None]
  - PROTHROMBIN TIME PROLONGED [None]
  - SUBDURAL HAEMORRHAGE [None]
  - VITAMIN K DEFICIENCY [None]
